FAERS Safety Report 19960274 (Version 2)
Quarter: 2021Q4

REPORT INFORMATION
  Report Type: Report from Study
  Country: US (occurrence: US)
  Receive Date: 20211015
  Receipt Date: 20211018
  Transmission Date: 20220303
  Serious: Yes (Hospitalization)
  Sender: FDA-Public Use
  Company Number: US-EISAI MEDICAL RESEARCH-EC-2021-101351

PATIENT
  Age: 52 Year
  Sex: Female
  Weight: 60.2 kg

DRUGS (16)
  1. LENVATINIB [Suspect]
     Active Substance: LENVATINIB
     Indication: Metastases to meninges
     Route: 048
     Dates: start: 20210512
  2. PEMBROLIZUMAB [Suspect]
     Active Substance: PEMBROLIZUMAB
     Indication: Metastases to meninges
     Route: 041
     Dates: start: 20210512
  3. TYLENOL [Concomitant]
     Active Substance: ACETAMINOPHEN
  4. DECADRON [Concomitant]
     Active Substance: DEXAMETHASONE
  5. ELIQUIS [Concomitant]
     Active Substance: APIXABAN
  6. NEURONTIN [Concomitant]
     Active Substance: GABAPENTIN
  7. SYNTHROID [Concomitant]
     Active Substance: LEVOTHYROXINE SODIUM
  8. LEVOTHROID [Concomitant]
     Active Substance: LEVOTHYROXINE SODIUM
  9. NAMENDA [Concomitant]
     Active Substance: MEMANTINE HYDROCHLORIDE
  10. MORPHINE SULFATE [Concomitant]
     Active Substance: MORPHINE SULFATE
  11. PRILOSEC [Concomitant]
     Active Substance: OMEPRAZOLE MAGNESIUM
  12. OXYCODONE [Concomitant]
     Active Substance: OXYCODONE
  13. LYRICA [Concomitant]
     Active Substance: PREGABALIN
  14. COMPAZINE [Concomitant]
     Active Substance: PROCHLORPERAZINE MALEATE
  15. SENOKOT [Concomitant]
     Active Substance: SENNOSIDES
  16. CARAFATE [Concomitant]
     Active Substance: SUCRALFATE

REACTIONS (1)
  - Nervous system disorder [Unknown]

NARRATIVE: CASE EVENT DATE: 20211007
